FAERS Safety Report 8245126 (Version 2)
Quarter: 2019Q1

REPORT INFORMATION
  Report Type: Spontaneous
  Country: GB (occurrence: GB)
  Receive Date: 20111115
  Receipt Date: 20190307
  Transmission Date: 20190418
  Serious: Yes (Other)
  Sender: FDA-Public Use
  Company Number: GB-PFIZER INC-2011277895

PATIENT
  Age: 31 Year
  Sex: Male

DRUGS (1)
  1. CHAMPIX [Suspect]
     Active Substance: VARENICLINE TARTRATE
     Dosage: 1 MG, 2X/DAY
     Route: 048
     Dates: start: 20110815, end: 20111023

REACTIONS (3)
  - Social avoidant behaviour [Unknown]
  - Depressed mood [Recovered/Resolved]
  - Flat affect [Unknown]

NARRATIVE: CASE EVENT DATE: 2011
